FAERS Safety Report 18573214 (Version 1)
Quarter: 2020Q4

REPORT INFORMATION
  Report Type: Spontaneous
  Country: JP (occurrence: JP)
  Receive Date: 20201203
  Receipt Date: 20201203
  Transmission Date: 20210114
  Serious: Yes (Hospitalization, Other)
  Sender: FDA-Public Use
  Company Number: JP-GLAXOSMITHKLINE-JP2020215913

PATIENT
  Age: 44 Year
  Sex: Female

DRUGS (2)
  1. BENLYSTA [Suspect]
     Active Substance: BELIMUMAB
     Dosage: UNK, WE
     Route: 058
     Dates: start: 202011, end: 202011
  2. BENLYSTA [Suspect]
     Active Substance: BELIMUMAB
     Indication: SYSTEMIC LUPUS ERYTHEMATOSUS
     Dosage: UNK, WE
     Route: 058
     Dates: start: 20201027, end: 2020

REACTIONS (4)
  - Chronic kidney disease [Unknown]
  - Anaemia [Unknown]
  - Diverticulitis [Unknown]
  - Melaena [Unknown]

NARRATIVE: CASE EVENT DATE: 2020
